APPROVED DRUG PRODUCT: HALOPERIDOL
Active Ingredient: HALOPERIDOL
Strength: 10MG
Dosage Form/Route: TABLET;ORAL
Application: A070724 | Product #001
Applicant: SCS PHARMACEUTICALS
Approved: Jun 10, 1986 | RLD: No | RS: No | Type: DISCN